FAERS Safety Report 18637777 (Version 3)
Quarter: 2021Q4

REPORT INFORMATION
  Report Type: Other
  Country: JP (occurrence: JP)
  Receive Date: 20201218
  Receipt Date: 20211018
  Transmission Date: 20220303
  Serious: Yes (Hospitalization, Other)
  Sender: FDA-Public Use
  Company Number: JP-CHUGAI-A2020053759ROCHE

PATIENT
  Age: 73 Year
  Sex: Female
  Weight: 69 kg

DRUGS (10)
  1. ATEZOLIZUMAB [Suspect]
     Active Substance: ATEZOLIZUMAB
     Indication: Bone lesion
     Route: 041
     Dates: start: 20201125, end: 20210602
  2. BEVACIZUMAB [Suspect]
     Active Substance: BEVACIZUMAB
     Indication: Lung adenocarcinoma
     Route: 041
     Dates: start: 20201125, end: 20210602
  3. CARBOPLATIN [Suspect]
     Active Substance: CARBOPLATIN
     Indication: Lung adenocarcinoma
     Route: 041
     Dates: start: 20201125
  4. PACLITAXEL [Suspect]
     Active Substance: PACLITAXEL
     Indication: Lung adenocarcinoma
     Route: 041
     Dates: start: 20201125
  5. CEFEPIME HYDROCHLORIDE [Suspect]
     Active Substance: CEFEPIME HYDROCHLORIDE
     Indication: Febrile neutropenia
     Route: 042
     Dates: start: 20201204, end: 20201206
  6. AMLODIPINE [Concomitant]
     Active Substance: AMLODIPINE BESYLATE
     Indication: Hypertension
     Route: 048
  7. CALCIUM CARBONATE\CHOLECALCIFEROL\MAGNESIUM CARBONATE [Concomitant]
     Active Substance: CALCIUM CARBONATE\CHOLECALCIFEROL\MAGNESIUM CARBONATE
     Indication: Bone lesion
     Route: 048
     Dates: start: 20191002
  8. URSODIOL [Concomitant]
     Active Substance: URSODIOL
     Indication: Hepatic enzyme increased
     Route: 048
     Dates: start: 20200716
  9. OLOPATADINE HYDROCHLORIDE [Concomitant]
     Active Substance: OLOPATADINE HYDROCHLORIDE
     Indication: Rash
     Route: 048
     Dates: start: 20200819
  10. DENOSUMAB [Concomitant]
     Active Substance: DENOSUMAB
     Indication: Bone lesion
     Route: 058
     Dates: start: 20170831

REACTIONS (5)
  - Constipation [Unknown]
  - Febrile neutropenia [Unknown]
  - Blood sodium decreased [Unknown]
  - Neutrophil count decreased [Unknown]
  - Erythema multiforme [Recovering/Resolving]

NARRATIVE: CASE EVENT DATE: 20201126
